FAERS Safety Report 16053197 (Version 1)
Quarter: 2019Q1

REPORT INFORMATION
  Report Type: Spontaneous
  Country: FR (occurrence: FR)
  Receive Date: 20190308
  Receipt Date: 20190308
  Transmission Date: 20190418
  Serious: Yes (Hospitalization, Congenital Anomaly)
  Sender: FDA-Public Use
  Company Number: FR-MYLANLABS-2019M1021032

PATIENT
  Sex: Female
  Weight: 3.35 kg

DRUGS (1)
  1. TRAMADOL. [Suspect]
     Active Substance: TRAMADOL
     Indication: PRODUCT USED FOR UNKNOWN INDICATION
     Dosage: UNK
     Route: 064
     Dates: start: 20130809, end: 20140424

REACTIONS (4)
  - Foetal exposure during pregnancy [Recovered/Resolved]
  - Cleft palate [Recovered/Resolved]
  - Drug withdrawal syndrome neonatal [Recovered/Resolved]
  - Cleft uvula [Recovered/Resolved]

NARRATIVE: CASE EVENT DATE: 201404
